FAERS Safety Report 12170137 (Version 1)
Quarter: 2016Q1

REPORT INFORMATION
  Report Type: Spontaneous
  Country: US (occurrence: US)
  Receive Date: 20160311
  Receipt Date: 20160311
  Transmission Date: 20160526
  Serious: No
  Sender: FDA-Public Use
  Company Number: US-009507513-1603USA004064

PATIENT
  Age: 18 Year
  Sex: Female
  Weight: 75.28 kg

DRUGS (1)
  1. NEXPLANON [Suspect]
     Active Substance: ETONOGESTREL
     Indication: CONTRACEPTION
     Dosage: 1 ROD, UNK
     Route: 058
     Dates: start: 20151208, end: 20160225

REACTIONS (1)
  - Implant site infection [Recovering/Resolving]

NARRATIVE: CASE EVENT DATE: 20160125
